FAERS Safety Report 7962717-1 (Version None)
Quarter: 2011Q4

REPORT INFORMATION
  Report Type: 
  Country: None (occurrence: None)
  Receive Date: 20111207
  Receipt Date: 20111128
  Transmission Date: 20120403
  Serious: Yes (Hospitalization)
  Sender: FDA-Public Use
  Company Number: US-CELGENEUS-163-20785-11093336

PATIENT
  Sex: Female

DRUGS (24)
  1. NITROGLYCERIN [Concomitant]
     Dosage: .4 MILLIGRAM
     Route: 062
  2. PRAVASTATIN [Concomitant]
     Dosage: 40 MILLIGRAM
     Route: 048
  3. QUINIDINE GLUCONATE [Concomitant]
     Dosage: 324 MILLIGRAM
     Route: 048
  4. ASPIRIN [Concomitant]
     Dosage: 81 MILLIGRAM
     Route: 048
  5. LOSARTAN POTASSIUM [Concomitant]
     Route: 065
  6. HYDROCHLOROTHIAZIDE [Concomitant]
     Route: 065
  7. AMLODIPINE [Concomitant]
     Route: 065
  8. LOVAZA [Concomitant]
     Route: 065
  9. DIOVAN HCT [Concomitant]
     Route: 065
  10. DEXAMETHASONE [Concomitant]
     Dosage: 4 MILLIGRAM
     Route: 048
     Dates: start: 20110616
  11. HYDRALAZINE HCL [Concomitant]
     Route: 048
  12. ZETIA [Concomitant]
     Dosage: 10 MILLIGRAM
     Route: 048
  13. OXYGEN [Concomitant]
     Dosage: 2 LITERS
     Route: 045
  14. VITAMIN E [Concomitant]
     Dosage: 1000 MILLIGRAM
     Route: 048
  15. METOPROLOL TARTRATE [Concomitant]
     Route: 065
  16. THALOMID [Suspect]
     Dosage: 100 MILLIGRAM
     Route: 048
     Dates: start: 20110315
  17. LEVOTHROID [Concomitant]
     Route: 065
  18. METOPROLOL TARTRATE [Concomitant]
     Dosage: 100 MILLIGRAM
     Route: 048
  19. AMLODIPINE BESYLATE [Concomitant]
     Route: 065
  20. NORVASC [Concomitant]
     Dosage: 10 MILLIGRAM
     Route: 048
  21. CALCIUM CARBONATE/VITAMIN D3 [Concomitant]
     Route: 048
  22. SYNTHROID [Concomitant]
     Dosage: 25 MICROGRAM
     Route: 048
  23. MULTI-VITAMINS [Concomitant]
     Route: 048
  24. VALSARTAN/HYDROCHLOROTHIAZIDE [Concomitant]
     Dosage: 150/12.5 MG
     Route: 048

REACTIONS (1)
  - SYSTEMIC INFLAMMATORY RESPONSE SYNDROME [None]
